FAERS Safety Report 8985413 (Version 1)
Quarter: 2012Q4

REPORT INFORMATION
  Report Type: 
  Country: US (occurrence: US)
  Receive Date: 20121226
  Receipt Date: 20121226
  Transmission Date: 20130627
  Serious: Yes (Hospitalization)
  Sender: FDA-Public Use
  Company Number: US-TEVA-377168USA

PATIENT
  Sex: Female

DRUGS (1)
  1. QUETIAPINE FUMARATE [Suspect]

REACTIONS (5)
  - Local swelling [Unknown]
  - Jaw disorder [Unknown]
  - Swollen tongue [Unknown]
  - Gingival swelling [Unknown]
  - Eye swelling [Unknown]
